FAERS Safety Report 6392078-3 (Version None)
Quarter: 2009Q4

REPORT INFORMATION
  Report Type: 
  Country: None (occurrence: None)
  Receive Date: 20091007
  Receipt Date: 20090930
  Transmission Date: 20100525
  Serious: Yes (Hospitalization)
  Sender: FDA-Public Use
  Company Number: US-GILEAD-2009-0024541

PATIENT
  Sex: Male
  Weight: 86.26 kg

DRUGS (18)
  1. LETAIRIS [Suspect]
     Indication: PULMONARY ARTERIAL HYPERTENSION
     Route: 048
     Dates: start: 20090915
  2. LISINOPRIL [Concomitant]
  3. FUROSEMIDE [Concomitant]
  4. AMLODIPINE BESYLATE [Concomitant]
  5. WARFARIN [Concomitant]
  6. LIPITOR [Concomitant]
  7. TRICOR [Concomitant]
  8. NITROGLYCERIN [Concomitant]
  9. HYDROXYZINE [Concomitant]
  10. FLOMAX [Concomitant]
  11. PROTONIX [Concomitant]
  12. ACTOS [Concomitant]
  13. FINASTERIDE [Concomitant]
  14. AMITRIPTYLINE [Concomitant]
  15. KLOR-CON [Concomitant]
  16. NU-IRON [Concomitant]
  17. MULTI-VITAMIN [Concomitant]
  18. ASCORBIC ACID [Concomitant]

REACTIONS (1)
  - PNEUMONIA [None]
